FAERS Safety Report 7472572-4 (Version None)
Quarter: 2011Q1

REPORT INFORMATION
  Report Type: 
  Country: None (occurrence: None)
  Receive Date: 20110302
  Receipt Date: 20101217
  Transmission Date: 20110831
  Serious: Yes (Hospitalization, Other)
  Sender: FDA-Public Use
  Company Number: 163-21880-10101598

PATIENT
  Age: 83 Year
  Sex: Male

DRUGS (30)
  1. COZAAR [Concomitant]
  2. HUMULIN R [Concomitant]
  3. MIRALAX [Concomitant]
  4. MULTIVITAMIN [Concomitant]
  5. EFFEXOR XR [Concomitant]
  6. HUMALOG [Concomitant]
  7. ACETAMINOPHEN [Concomitant]
  8. ADVAIR HFA [Concomitant]
  9. MIRAPEX [Concomitant]
  10. PYRIDIUM (PHENAZOPYRIDINE HYDROCHLORIDE) [Concomitant]
  11. XANAX [Concomitant]
  12. DITROPAN [Concomitant]
  13. LOVAZA [Concomitant]
  14. LASIX [Concomitant]
  15. LORTAB (VICODIN) [Concomitant]
  16. ALBUTEROL [Concomitant]
  17. LACTULOSE [Concomitant]
  18. CLOTRIMAZOLE [Concomitant]
  19. NEURONTIN [Concomitant]
  20. SYMBICORT (SYMBICORT TURBUHALER) [Concomitant]
  21. NEXIUM [Concomitant]
  22. NOVOLOG [Concomitant]
  23. MEGACE [Concomitant]
  24. FLOMAX [Concomitant]
  25. AGGRENOX [Concomitant]
  26. REVLIMID [Suspect]
     Indication: 5Q MINUS SYNDROME
     Dosage: 5 MG, 1 IN 1 D, PO, 10 MG, 1 IN 1 D, PO
     Route: 048
     Dates: start: 20090427
  27. REVLIMID [Suspect]
     Indication: 5Q MINUS SYNDROME
     Dosage: 5 MG, 1 IN 1 D, PO, 10 MG, 1 IN 1 D, PO
     Route: 048
     Dates: start: 20090713
  28. EPO (EPOETIN ALFA) [Concomitant]
  29. PROCARDIA XL [Concomitant]
  30. AMBIEN [Concomitant]

REACTIONS (14)
  - BLOOD CREATININE [None]
  - FEBRILE NEUTROPENIA [None]
  - HYPOTENSION [None]
  - CARDIAC FAILURE [None]
  - PANCYTOPENIA [None]
  - BLOOD CREATININE INCREASED [None]
  - DYSPNOEA [None]
  - LOBAR PNEUMONIA [None]
  - CHILLS [None]
  - DRUG DOSE OMISSION [None]
  - PYREXIA [None]
  - HAEMOGLOBIN DECREASED [None]
  - PULMONARY OEDEMA [None]
  - SEPSIS [None]
